FAERS Safety Report 8534556 (Version 2)
Quarter: 2013Q1

REPORT INFORMATION
  Report Type: Spontaneous
  Country: FR (occurrence: FR)
  Receive Date: 20120427
  Receipt Date: 20130202
  Transmission Date: 20140127
  Serious: Yes (Death)
  Sender: FDA-Public Use
  Company Number: FR-B.I. PHARMACEUTICALS,INC./RIDGEFIELD-2012-FF-00510FF

PATIENT
  Age: 89 Year
  Sex: Male
  Weight: 64 kg

DRUGS (6)
  1. PRADAXA [Suspect]
     Indication: ATRIAL FIBRILLATION
     Dosage: 220 MG
     Route: 048
  2. TAHOR [Concomitant]
     Route: 048
  3. KARDEGIC [Concomitant]
     Route: 048
  4. PARIET [Concomitant]
  5. CARDENSIEL [Concomitant]
  6. LASILIX [Concomitant]

REACTIONS (1)
  - Cerebral haemorrhage [Fatal]
